FAERS Safety Report 17855657 (Version 1)
Quarter: 2020Q2

REPORT INFORMATION
  Report Type: Spontaneous
  Country: US (occurrence: US)
  Receive Date: 20200603
  Receipt Date: 20200603
  Transmission Date: 20200714
  Serious: No
  Sender: FDA-Public Use
  Company Number: US-BAYER-2020-104116

PATIENT
  Sex: Female

DRUGS (1)
  1. MIRALAX [Suspect]
     Active Substance: POLYETHYLENE GLYCOL 3350
     Dosage: UNK
     Route: 065
     Dates: start: 2020

REACTIONS (2)
  - Drug ineffective [Unknown]
  - Expired product administered [Unknown]

NARRATIVE: CASE EVENT DATE: 2020
